FAERS Safety Report 8746533 (Version 3)
Quarter: 2012Q4

REPORT INFORMATION
  Report Type: Report from Study
  Country: AU (occurrence: AU)
  Receive Date: 20120827
  Receipt Date: 20120906
  Transmission Date: 20130627
  Serious: Yes (Life-Threatening, Hospitalization, Other)
  Sender: FDA-Public Use
  Company Number: AU-JNJFOC-20120809874

PATIENT
  Sex: Female

DRUGS (6)
  1. RISPERIDONE [Suspect]
     Indication: PSYCHOTIC DISORDER
     Dosage: start date - pre pregnancy Stop date - 22nd week
     Route: 048
  2. ARIPIPRAZOLE [Suspect]
     Indication: PSYCHOTIC DISORDER
     Dosage: start date - pre pregnancy

Stop date - 28nd week
     Route: 048
  3. OLANZAPINE [Suspect]
     Indication: PSYCHOTIC DISORDER
     Dosage: started from 26th week of pregnancy
     Route: 048
  4. ZIPRASIDONE [Suspect]
     Indication: PSYCHOTIC DISORDER
     Dosage: Start date - pre pregnancy Stop date - 22nd week
     Route: 048
  5. LITHIUM [Suspect]
     Indication: DRUG THERAPY
     Dosage: start date - pre pregnancy

Stop date - 22nd week
     Route: 048
  6. METFORMIN [Suspect]
     Indication: GESTATIONAL DIABETES
     Dosage: start date - 26th week 

stop date - at birth
     Route: 048

REACTIONS (2)
  - Gestational diabetes [Recovered/Resolved]
  - Exposure during pregnancy [Recovered/Resolved]
